FAERS Safety Report 7653639-4 (Version None)
Quarter: 2011Q3

REPORT INFORMATION
  Report Type: 
  Country: None (occurrence: None)
  Receive Date: 20110803
  Receipt Date: 20110803
  Transmission Date: 20111222
  Serious: Yes (Other)
  Sender: FDA-Public Use
  Company Number: None

PATIENT
  Age: 39 Year
  Sex: Female
  Weight: 54.431 kg

DRUGS (1)
  1. MIRENA [Suspect]
     Dates: start: 20090220, end: 20110729

REACTIONS (2)
  - VAGINITIS BACTERIAL [None]
  - MUSCLE SPASMS [None]
